FAERS Safety Report 6335457-2 (Version None)
Quarter: 2009Q3

REPORT INFORMATION
  Report Type: 
  Country: None (occurrence: None)
  Receive Date: 20090831
  Receipt Date: 20090819
  Transmission Date: 20100115
  Serious: Yes (Other)
  Sender: FDA-Public Use
  Company Number: US-ROCHE-646303

PATIENT
  Sex: Female

DRUGS (4)
  1. PEG-INTERFERON A-2A (RO 25-8310) [Suspect]
     Indication: HEPATITIS C
     Dosage: THE PATIENT WAS IN WEEK 40 OF TREATMENT, FORM: PRE-FILLED SYRINGE
     Route: 065
     Dates: start: 20081119
  2. RIBAVIRIN [Suspect]
     Indication: HEPATITIS C
     Dosage: DIVIDED DOSES, THE PATIENT WAS IN WEEK 40 OF TREATMENT
     Route: 065
     Dates: start: 20081119
  3. ELAVIL [Concomitant]
     Indication: DEPRESSION
  4. ELAVIL [Concomitant]

REACTIONS (6)
  - BREAST MASS [None]
  - DEPRESSION [None]
  - HAEMATOCRIT DECREASED [None]
  - HAEMOGLOBIN DECREASED [None]
  - RED BLOOD CELL COUNT DECREASED [None]
  - WHITE BLOOD CELL COUNT DECREASED [None]
